FAERS Safety Report 26178917 (Version 1)
Quarter: 2025Q4

REPORT INFORMATION
  Report Type: Spontaneous
  Country: JP (occurrence: JP)
  Receive Date: 20251219
  Receipt Date: 20251219
  Transmission Date: 20260118
  Serious: Yes (Hospitalization, Other)
  Sender: BRISTOL-MYERS SQUIBB COMPANY
  Company Number: JP-ONO-2024JP020288

PATIENT
  Age: 70 Year
  Sex: Male

DRUGS (1)
  1. OPDIVO [Suspect]
     Active Substance: NIVOLUMAB
     Indication: Oesophageal squamous cell carcinoma stage III
     Route: 041

REACTIONS (4)
  - Polymyalgia rheumatica [Recovered/Resolved]
  - Immune-mediated hypophysitis [Recovered/Resolved]
  - Immune-mediated lung disease [Recovered/Resolved]
  - Inappropriate antidiuretic hormone secretion [Recovered/Resolved]
